FAERS Safety Report 17982252 (Version 5)
Quarter: 2021Q2

REPORT INFORMATION
  Report Type: Spontaneous
  Country: US (occurrence: US)
  Receive Date: 20200706
  Receipt Date: 20210622
  Transmission Date: 20210717
  Serious: Yes (Other)
  Sender: FDA-Public Use
  Company Number: US-GILEAD-2020-0478642

PATIENT
  Age: 59 Year
  Sex: Male
  Weight: 97.05 kg

DRUGS (19)
  1. METAPROTERENOL POLISTIREX [Concomitant]
  2. TRUVADA [Suspect]
     Active Substance: EMTRICITABINE\TENOFOVIR DISOPROXIL FUMARATE
     Indication: HIV INFECTION
     Dosage: UNK
     Route: 048
     Dates: start: 200701, end: 20161031
  3. ASPIRIN (E.C.) [Concomitant]
     Active Substance: ASPIRIN
  4. NORVIR [Concomitant]
     Active Substance: RITONAVIR
  5. APTIVUS [Concomitant]
     Active Substance: TIPRANAVIR
  6. AZITHROMYCIN ANHYDROUS. [Concomitant]
     Active Substance: AZITHROMYCIN ANHYDROUS
  7. PREZISTA [Concomitant]
     Active Substance: DARUNAVIR ETHANOLATE
  8. PENTAMIDINE [Concomitant]
     Active Substance: PENTAMIDINE
  9. TRIUMEQ [Concomitant]
     Active Substance: ABACAVIR SULFATE\DOLUTEGRAVIR SODIUM\LAMIVUDINE
  10. ALUPENT [Concomitant]
     Active Substance: METAPROTERENOL SULFATE
  11. PROAIR BRONQUIAL [Concomitant]
  12. CLEOCIN [CLINDAMYCIN HYDROCHLORIDE] [Concomitant]
     Active Substance: CLINDAMYCIN HYDROCHLORIDE
  13. ISENTRESS [Concomitant]
     Active Substance: RALTEGRAVIR POTASSIUM
  14. PREZCOBIX [Concomitant]
     Active Substance: COBICISTAT\DARUNAVIR ETHANOLATE
  15. TIVICAY [Concomitant]
     Active Substance: DOLUTEGRAVIR SODIUM
  16. AVLOSULFON [Concomitant]
     Active Substance: DAPSONE
  17. CLARITIN [Concomitant]
     Active Substance: LORATADINE
  18. PRAVASTATIN. [Concomitant]
     Active Substance: PRAVASTATIN
  19. RETROVIR [Concomitant]
     Active Substance: ZIDOVUDINE

REACTIONS (7)
  - Bone density decreased [Unknown]
  - Radius fracture [Unknown]
  - Emotional distress [Unknown]
  - Multiple fractures [Recovered/Resolved]
  - Osteoporosis [Not Recovered/Not Resolved]
  - Tooth loss [Unknown]
  - Pain [Unknown]

NARRATIVE: CASE EVENT DATE: 20150420
